FAERS Safety Report 15469128 (Version 1)
Quarter: 2018Q4

REPORT INFORMATION
  Report Type: Spontaneous
  Country: UY (occurrence: UY)
  Receive Date: 20181005
  Receipt Date: 20181005
  Transmission Date: 20190205
  Serious: Yes (Life-Threatening, Hospitalization, Other)
  Sender: FDA-Public Use
  Company Number: UY-GLAXOSMITHKLINE-UY2018179405

PATIENT
  Age: 8 Year
  Sex: Male

DRUGS (3)
  1. LAMOTRIGINE. [Interacting]
     Active Substance: LAMOTRIGINE
     Dosage: 25 MG, QD
     Route: 065
  2. VALPROIC ACID. [Interacting]
     Active Substance: VALPROIC ACID
     Indication: SEIZURE
     Dosage: FOR SEVERAL YEARS
     Route: 065
  3. LAMOTRIGINE. [Suspect]
     Active Substance: LAMOTRIGINE
     Indication: SEIZURE
     Dosage: 50 MG, QD
     Route: 065

REACTIONS (8)
  - Stevens-Johnson syndrome [Recovering/Resolving]
  - Ulcer [Recovering/Resolving]
  - Respiratory failure [Recovering/Resolving]
  - Septic shock [Recovered/Resolved]
  - Peripheral circulatory failure [Recovering/Resolving]
  - Staphylococcal infection [Recovering/Resolving]
  - Drug interaction [Recovering/Resolving]
  - Conjunctivitis [Recovering/Resolving]
